FAERS Safety Report 8443802 (Version 3)
Quarter: 2012Q4

REPORT INFORMATION
  Report Type: 
  Country: US (occurrence: US)
  Receive Date: 20120306
  Receipt Date: 20120917
  Transmission Date: 20130627
  Serious: Yes (Hospitalization)
  Sender: FDA-Public Use
  Company Number: PHEH2012US001583

PATIENT
  Age: 43 Year
  Sex: Male
  Weight: 70.3 kg

DRUGS (2)
  1. GILENYA [Suspect]
     Indication: MULTIPLE SCLEROSIS
     Dosage: 0.5 mg, QD
     Route: 048
     Dates: start: 20120106, end: 20120301
  2. GILENYA [Suspect]
     Dosage: 0.5 mg, QD
     Route: 048
     Dates: start: 20120305

REACTIONS (3)
  - Grand mal convulsion [Recovered/Resolved]
  - Back pain [Recovering/Resolving]
  - Weight decreased [Unknown]
